FAERS Safety Report 5470755-6 (Version None)
Quarter: 2007Q3

REPORT INFORMATION
  Report Type: 
  Country: None (occurrence: None)
  Receive Date: 20070928
  Receipt Date: 20070919
  Transmission Date: 20080115
  Serious: Yes (Hospitalization)
  Sender: FDA-Public Use
  Company Number: US-AVENTIS-200718122GDDC

PATIENT
  Age: 50 Year
  Sex: Female
  Weight: 110.22 kg

DRUGS (9)
  1. TAXOTERE [Suspect]
     Indication: BREAST CANCER
     Route: 042
     Dates: start: 20070830, end: 20070830
  2. CYTOXAN [Suspect]
     Indication: BREAST CANCER
     Route: 042
     Dates: start: 20070830, end: 20070830
  3. TYLENOL (CAPLET) [Concomitant]
     Route: 048
     Dates: start: 19750101
  4. KYTRIL                             /01178101/ [Concomitant]
     Indication: NAUSEA
     Route: 048
     Dates: start: 20070724
  5. VASERETIC [Concomitant]
     Indication: HYPERTENSION
     Route: 048
     Dates: start: 20070810
  6. DARVOCET [Concomitant]
     Indication: PAIN
     Dates: start: 20070814
  7. ATIVAN [Concomitant]
     Indication: ANXIETY
     Dates: start: 20070814
  8. ATIVAN [Concomitant]
     Indication: NAUSEA
     Dates: start: 20070814
  9. TAGAMET [Concomitant]
     Indication: PEPTIC ULCER
     Route: 048
     Dates: start: 20070723

REACTIONS (3)
  - DEHYDRATION [None]
  - HYPOKALAEMIA [None]
  - NAUSEA [None]
